FAERS Safety Report 8475170-9 (Version None)
Quarter: 2012Q2

REPORT INFORMATION
  Report Type: 
  Country: None (occurrence: None)
  Receive Date: 20120628
  Receipt Date: 20120621
  Transmission Date: 20120825
  Serious: Yes (Other)
  Sender: FDA-Public Use
  Company Number: FR-PFIZER INC-2011144979

PATIENT
  Age: 79 Year
  Sex: Female
  Weight: 50 kg

DRUGS (7)
  1. MEPRONIZINE [Concomitant]
     Dosage: UNK
  2. PRAZEPAM [Concomitant]
     Dosage: UNK
  3. SERC [Concomitant]
     Dosage: UNK
  4. FENOFIBRATE [Concomitant]
     Dosage: UNK
  5. XALATAN [Concomitant]
     Indication: EYE DISORDER
  6. FLUCONAZOLE [Suspect]
     Indication: PULMONARY MYCOSIS
     Dosage: 1 DF, 1X/DAY
     Route: 048
     Dates: start: 20070528
  7. VASTAREL [Concomitant]
     Dosage: UNK

REACTIONS (8)
  - MUSCLE SPASMS [None]
  - SUICIDE ATTEMPT [None]
  - ALOPECIA [None]
  - FATIGUE [None]
  - DEPRESSION [None]
  - DISTURBANCE IN ATTENTION [None]
  - MALAISE [None]
  - SLEEP DISORDER [None]
